FAERS Safety Report 11750285 (Version 4)
Quarter: 2016Q1

REPORT INFORMATION
  Report Type: Report from Study
  Country: CN (occurrence: CN)
  Receive Date: 20151118
  Receipt Date: 20160114
  Transmission Date: 20160525
  Serious: Yes (Death, Life-Threatening, Hospitalization)
  Sender: FDA-Public Use
  Company Number: CN-BRISTOL-MYERS SQUIBB COMPANY-BMS-2015-078617

PATIENT
  Age: 63 Year
  Sex: Male
  Weight: 50 kg

DRUGS (5)
  1. HUMAN ALBUMIN [Concomitant]
     Active Substance: ALBUMIN (HUMAN)
     Indication: HYPOPROTEINAEMIA
     Dosage: 10 G, QD
     Route: 041
     Dates: start: 20151104, end: 20151106
  2. FAT EMULSION NOS [Concomitant]
     Active Substance: EGG PHOSPHOLIPIDS\SAFFLOWER OIL\SOYBEAN OIL
     Indication: MALNUTRITION
     Dosage: 50 G, QD
     Route: 065
     Dates: start: 20151030, end: 20151105
  3. CISPLATIN. [Suspect]
     Active Substance: CISPLATIN
     Indication: SQUAMOUS CELL CARCINOMA OF HEAD AND NECK
     Dosage: 114 MG, QCYCLE
     Route: 042
     Dates: start: 20151030, end: 20151030
  4. FLUOROURACIL. [Suspect]
     Active Substance: FLUOROURACIL
     Indication: SQUAMOUS CELL CARCINOMA OF HEAD AND NECK
     Dosage: 5700 MG, UNK
     Route: 042
     Dates: start: 20151030, end: 20151030
  5. CETUXIMAB [Suspect]
     Active Substance: CETUXIMAB
     Indication: SQUAMOUS CELL CARCINOMA OF HEAD AND NECK
     Dosage: 610 MG, QWK
     Route: 042
     Dates: start: 20151030, end: 20151030

REACTIONS (1)
  - Pneumonia [Fatal]

NARRATIVE: CASE EVENT DATE: 20151105
